FAERS Safety Report 8332260-9 (Version None)
Quarter: 2012Q2

REPORT INFORMATION
  Report Type: 
  Country: None (occurrence: None)
  Receive Date: 20120503
  Receipt Date: 20120425
  Transmission Date: 20120825
  Serious: No
  Sender: FDA-Public Use
  Company Number: US-BIOGENIDEC-2012BI014532

PATIENT
  Sex: Female

DRUGS (3)
  1. TYSABRI [Suspect]
     Indication: MULTIPLE SCLEROSIS
     Route: 042
     Dates: start: 20070425, end: 20080204
  2. TYSABRI [Suspect]
     Route: 042
     Dates: start: 20120229
  3. AVONEX [Concomitant]
     Indication: MULTIPLE SCLEROSIS
     Route: 030
     Dates: start: 19980101

REACTIONS (6)
  - GAIT DISTURBANCE [None]
  - FATIGUE [None]
  - TREMOR [None]
  - DYSPHAGIA [None]
  - BALANCE DISORDER [None]
  - FALL [None]
